FAERS Safety Report 10671868 (Version 8)
Quarter: 2016Q4

REPORT INFORMATION
  Report Type: Report from Study
  Country: JP (occurrence: JP)
  Receive Date: 20141223
  Receipt Date: 20161006
  Transmission Date: 20170206
  Serious: Yes (Death, Life-Threatening, Hospitalization, Other)
  Sender: FDA-Public Use
  Company Number: JP-INCYTE CORPORATION-2014IN003979

PATIENT
  Age: 81 Year
  Sex: Female
  Weight: 40 kg

DRUGS (9)
  1. JAKAVI [Suspect]
     Active Substance: RUXOLITINIB
     Dosage: 5 MG, BID
     Route: 048
     Dates: start: 20141120, end: 20150422
  2. JAKAVI [Suspect]
     Active Substance: RUXOLITINIB
     Indication: MYELOFIBROSIS
     Dosage: 10 MG, BID
     Route: 048
     Dates: start: 20141022, end: 20141119
  3. HYDREA [Suspect]
     Active Substance: HYDROXYUREA
     Indication: MYELOFIBROSIS
     Dosage: 500 MG, QD
     Route: 048
     Dates: start: 20150520, end: 20160317
  4. JAKAVI [Suspect]
     Active Substance: RUXOLITINIB
     Dosage: 5 MG, BID
     Route: 048
     Dates: start: 20150521, end: 20150826
  5. JAKAVI [Suspect]
     Active Substance: RUXOLITINIB
     Dosage: 5 MG, QD
     Route: 048
     Dates: start: 20150827, end: 20150917
  6. JAKAVI [Suspect]
     Active Substance: RUXOLITINIB
     Dosage: TWICE A WEEK ON MONDAYS AND FRIDAYS
     Route: 048
     Dates: start: 20151118, end: 20160222
  7. JAKAVI [Suspect]
     Active Substance: RUXOLITINIB
     Dosage: 2 TABLETS IN THE MORNING, 1 TABLET IN THE EVENING
     Route: 048
     Dates: start: 20150423, end: 20150520
  8. JAKAVI [Suspect]
     Active Substance: RUXOLITINIB
     Dosage: ONCE A WEEK ON MONDAYS ONLY
     Route: 048
     Dates: start: 20160224, end: 20160307
  9. JAKAVI [Suspect]
     Active Substance: RUXOLITINIB
     Dosage: THREE TIMES A WEEK ON MONDAYS, WEDNESDAYS AND FRIDAYS
     Route: 048
     Dates: start: 20150924, end: 20151117

REACTIONS (9)
  - Cardiac failure [Recovering/Resolving]
  - Blood count abnormal [Unknown]
  - Haemoglobin decreased [Recovering/Resolving]
  - White blood cell count increased [Unknown]
  - Blood urea increased [Recovered/Resolved]
  - Gastrointestinal haemorrhage [Fatal]
  - Platelet count decreased [Recovering/Resolving]
  - Weight increased [Unknown]
  - Nephrogenic anaemia [Recovered/Resolved]

NARRATIVE: CASE EVENT DATE: 20141119
